FAERS Safety Report 7164625-5 (Version None)
Quarter: 2010Q4

REPORT INFORMATION
  Report Type: 
  Country: None (occurrence: None)
  Receive Date: 20101126
  Receipt Date: 20100727
  Transmission Date: 20110411
  Serious: No
  Sender: FDA-Public Use
  Company Number: 016429

PATIENT
  Sex: Male
  Weight: 79.4 kg

DRUGS (2)
  1. CIMZIA [Suspect]
     Indication: COLITIS ULCERATIVE
     Dosage: 2 SHOOTS OF UNSPECIFIED DOSAGE ONCE EVERY 4 WEEKS, SUBCUTANEOUS
     Route: 058
     Dates: start: 20100401
  2. PREDNISONE [Concomitant]

REACTIONS (2)
  - DRUG INEFFECTIVE FOR UNAPPROVED INDICATION [None]
  - WEIGHT DECREASED [None]
